FAERS Safety Report 7629158-8 (Version None)
Quarter: 2011Q3

REPORT INFORMATION
  Report Type: 
  Country: None (occurrence: None)
  Receive Date: 20110722
  Receipt Date: 20110709
  Transmission Date: 20111222
  Serious: Yes (Hospitalization)
  Sender: FDA-Public Use
  Company Number: PHHY2011IN62512

PATIENT
  Age: 60 Year
  Sex: Female

DRUGS (7)
  1. PROMETHAZINE [Concomitant]
     Dosage: 12.5 MG, UNK
     Route: 030
  2. METRONIDAZOLE [Concomitant]
     Dosage: UNK UKN, UNK
     Route: 042
  3. MEPERIDINE HCL [Concomitant]
     Dosage: 50 MG, UNK
  4. CEFOTAXIME [Concomitant]
     Dosage: UNK UKN, UNK
     Route: 042
  5. METRONIDAZOLE [Concomitant]
     Dosage: UNK UKN, UNK
     Route: 048
  6. ANAESTHETICS [Concomitant]
     Dosage: UNK UKN, UNK
  7. DICLOFENAC SODIUM [Suspect]
     Dosage: TWICE DAILY
     Route: 065

REACTIONS (18)
  - ENDOMETRIAL ATROPHY [None]
  - PURPURA [None]
  - BLEEDING TIME PROLONGED [None]
  - GINGIVAL BLEEDING [None]
  - HAEMATEMESIS [None]
  - PALLOR [None]
  - INJECTION SITE HAEMATOMA [None]
  - CERVICITIS [None]
  - HAEMATURIA [None]
  - BLOOD UREA INCREASED [None]
  - BLOOD CREATININE INCREASED [None]
  - URINARY RETENTION [None]
  - HAEMOGLOBIN DECREASED [None]
  - MOUTH HAEMORRHAGE [None]
  - ABDOMINAL PAIN LOWER [None]
  - THROMBOCYTOPENIA [None]
  - VAGINAL HAEMORRHAGE [None]
  - EPISTAXIS [None]
